FAERS Safety Report 12716999 (Version 1)
Quarter: 2016Q3

REPORT INFORMATION
  Report Type: Spontaneous
  Country: US (occurrence: US)
  Receive Date: 20160906
  Receipt Date: 20160906
  Transmission Date: 20161109
  Serious: Yes (Other)
  Sender: FDA-Public Use
  Company Number: US-BAYER-2016-172848

PATIENT
  Age: 3 Year
  Sex: Female

DRUGS (1)
  1. CHILDREN CLARITIN ALLERGY [Suspect]
     Active Substance: LORATADINE
     Dosage: INGESTED 1-2 TEASPOONS

REACTIONS (4)
  - Intestinal haemorrhage [None]
  - Haematuria [None]
  - Pyrexia [None]
  - Extra dose administered [None]

NARRATIVE: CASE EVENT DATE: 20160829
